FAERS Safety Report 20367449 (Version 2)
Quarter: 2022Q1

REPORT INFORMATION
  Report Type: Spontaneous
  Country: US (occurrence: US)
  Receive Date: 20220124
  Receipt Date: 20220322
  Transmission Date: 20220423
  Serious: No
  Sender: FDA-Public Use
  Company Number: US-AMGEN-USASP2022005747

PATIENT
  Age: 56 Year
  Sex: Female

DRUGS (3)
  1. AVSOLA [Suspect]
     Active Substance: INFLIXIMAB-AXXQ
     Indication: Colitis ulcerative
     Dosage: UNK, Q8WK
     Route: 065
     Dates: start: 202109
  2. AVSOLA [Suspect]
     Active Substance: INFLIXIMAB-AXXQ
     Dosage: UNK, Q8WK
     Route: 065
     Dates: start: 202109
  3. COVID-19 VACCINE [Concomitant]
     Indication: COVID-19

REACTIONS (2)
  - Joint swelling [Unknown]
  - Arthralgia [Unknown]
